FAERS Safety Report 8429516-8 (Version None)
Quarter: 2012Q2

REPORT INFORMATION
  Report Type: 
  Country: None (occurrence: None)
  Receive Date: 20120612
  Receipt Date: 20120530
  Transmission Date: 20120825
  Serious: Yes (Death, Life-Threatening, Disabling)
  Sender: FDA-Public Use
  Company Number: JP-FRI-1000031190

PATIENT
  Sex: Male
  Weight: 48 kg

DRUGS (6)
  1. GASCON [Concomitant]
     Indication: ABDOMINAL PAIN
     Dosage: 120 MG
     Route: 048
     Dates: start: 20120330, end: 20120409
  2. LEXAPRO [Suspect]
     Indication: DEPRESSION
     Dosage: 10 MG
     Route: 048
     Dates: start: 20120403, end: 20120409
  3. LANSOPRAZOLE [Concomitant]
     Indication: GASTRIC ULCER
     Dosage: 15 MG
     Route: 048
     Dates: start: 20120322, end: 20120409
  4. DOGMATYL [Concomitant]
     Indication: DEPRESSION
     Dosage: 100 MG
     Route: 048
     Dates: start: 20120328, end: 20120409
  5. ZOLOFT [Suspect]
     Dosage: 50 MG
     Route: 048
     Dates: end: 20120403
  6. PREDNISOLONE [Concomitant]
     Indication: DEATH
     Dosage: 10 MG
     Route: 041
     Dates: start: 20120314

REACTIONS (7)
  - CARDIAC FAILURE CONGESTIVE [None]
  - URINARY TRACT INFECTION [None]
  - INAPPROPRIATE ANTIDIURETIC HORMONE SECRETION [None]
  - HYPONATRAEMIA [None]
  - LOSS OF CONSCIOUSNESS [None]
  - DECREASED APPETITE [None]
  - RENAL FAILURE [None]
